FAERS Safety Report 15267185 (Version 2)
Quarter: 2018Q3

REPORT INFORMATION
  Report Type: Report from Study
  Country: US (occurrence: US)
  Receive Date: 20180810
  Receipt Date: 20180820
  Transmission Date: 20181010
  Serious: No
  Sender: FDA-Public Use
  Company Number: PHEH2018US032937

PATIENT
  Age: 37 Year
  Sex: Female
  Weight: 58.67 kg

DRUGS (1)
  1. GLATOPA [Suspect]
     Active Substance: GLATIRAMER ACETATE
     Indication: MULTIPLE SCLEROSIS
     Dosage: 20 MG, QD
     Route: 058
     Dates: start: 20180709, end: 20180730

REACTIONS (5)
  - Headache [Recovered/Resolved]
  - Rash pruritic [Recovered/Resolved]
  - Injection site irritation [Recovered/Resolved]
  - Injection site bruising [Recovered/Resolved]
  - Rash [Recovered/Resolved]

NARRATIVE: CASE EVENT DATE: 20180709
